FAERS Safety Report 6060125-4 (Version None)
Quarter: 2009Q1

REPORT INFORMATION
  Report Type: 
  Country: None (occurrence: None)
  Receive Date: 20090128
  Receipt Date: 20090113
  Transmission Date: 20090719
  Serious: Yes (Other)
  Sender: FDA-Public Use
  Company Number: 2009S1000714

PATIENT
  Age: 58 Year
  Sex: Female
  Weight: 65 kg

DRUGS (6)
  1. METOPROLOL (METOPROLOL) 100 MG [Suspect]
     Indication: HYPERTENSION
     Dosage: 100 MG; DAILY; ORAL
     Route: 048
  2. LYRICA [Suspect]
     Indication: NEUROPATHY PERIPHERAL
     Dosage: 75 MG; TWICE A DAY
  3. MANINIL (GLIBENCLAMIDE) (1.75 MG) [Suspect]
     Indication: TYPE 2 DIABETES MELLITUS
     Dosage: 1.75 MG; PO; ORAL
     Route: 048
     Dates: end: 20081026
  4. CITALOPRAM HYDROBROMIDE [Concomitant]
  5. DELIX [Concomitant]
  6. EBIXA [Concomitant]

REACTIONS (1)
  - HYPOGLYCAEMIA [None]
